FAERS Safety Report 9111034 (Version 1)
Quarter: 2013Q1

REPORT INFORMATION
  Report Type: Spontaneous
  Country: US (occurrence: US)
  Receive Date: 20130219
  Receipt Date: 20130219
  Transmission Date: 20140127
  Serious: No
  Sender: FDA-Public Use
  Company Number: US-BRISTOL-MYERS SQUIBB COMPANY-16917163

PATIENT
  Age: 49 Year
  Sex: Female
  Weight: 130 kg

DRUGS (2)
  1. ABATACEPT SUBQ INJECTION 125MG/ML [Suspect]
     Indication: RHEUMATOID ARTHRITIS
     Dosage: LAST INJECTION: 29AUG2012.
  2. PREDNISOLONE [Suspect]

REACTIONS (2)
  - Pallor [Unknown]
  - Weight increased [Unknown]
